FAERS Safety Report 5152441-5 (Version None)
Quarter: 2006Q4

REPORT INFORMATION
  Report Type: 
  Country: None (occurrence: None)
  Receive Date: 20061116
  Receipt Date: 20060509
  Transmission Date: 20070319
  Serious: Yes (Death, Other)
  Sender: FDA-Public Use
  Company Number: US-ELI_LILLY_AND_COMPANY-US200609002397

PATIENT
  Age: 28 Year
  Sex: Male
  Weight: 163.27 kg

DRUGS (4)
  1. ZYPREXA [Suspect]
     Indication: DIABETES MELLITUS
     Dosage: 20 MG, UNK
     Dates: start: 19991001, end: 20050301
  2. ZYPREXA [Suspect]
     Dosage: 10 MG, UNK
     Dates: start: 20050301, end: 20050601
  3. ZYPREXA [Suspect]
     Dosage: 5 MG, UNK
  4. ZYPREXA [Suspect]
     Dosage: 2.5 MG, UNK
     Dates: end: 20060601

REACTIONS (4)
  - DEATH [None]
  - DIABETES MELLITUS [None]
  - METABOLIC DISORDER [None]
  - PANCREATITIS [None]
